FAERS Safety Report 15979770 (Version 1)
Quarter: 2019Q1

REPORT INFORMATION
  Report Type: Spontaneous
  Country: US (occurrence: US)
  Receive Date: 20190218
  Receipt Date: 20190218
  Transmission Date: 20190418
  Serious: Yes (Disabling, Other)
  Sender: FDA-Public Use
  Company Number: None

PATIENT
  Age: 59 Year
  Sex: Female
  Weight: 73.35 kg

DRUGS (7)
  1. ODEFSEY [Suspect]
     Active Substance: EMTRICITABINE\RILPIVIRINE HYDROCHLORIDE\TENOFOVIR ALAFENAMIDE FUMARATE
     Indication: HIV INFECTION
     Dosage: ?          QUANTITY:30 TABLET(S);?
     Route: 048
  2. MEDICAL CANNABIS [Concomitant]
     Active Substance: CANNABIS SATIVA SUBSP. INDICA TOP
  3. WRIST SPLINT [Concomitant]
  4. FINGER SPLINT [Concomitant]
  5. MORPHINE [Concomitant]
     Active Substance: MORPHINE
  6. COMPOUNDED ESTROGEN FENNEL ND MARSHMALLOW ROOT [Concomitant]
  7. TESTOSTERONE. [Concomitant]
     Active Substance: TESTOSTERONE

REACTIONS (5)
  - Arthritis [None]
  - Bone pain [None]
  - Osteoarthritis [None]
  - Mania [None]
  - X-ray limb abnormal [None]

NARRATIVE: CASE EVENT DATE: 20180401
